FAERS Safety Report 20475000 (Version 1)
Quarter: 2022Q1

REPORT INFORMATION
  Report Type: Spontaneous
  Country: US (occurrence: US)
  Receive Date: 20220215
  Receipt Date: 20220215
  Transmission Date: 20220423
  Serious: No
  Sender: FDA-Public Use
  Company Number: US-VALIDUS PHARMACEUTICALS LLC-US-VDP-2021-003812

PATIENT
  Age: 73 Year
  Sex: Female

DRUGS (2)
  1. LASIX [Suspect]
     Active Substance: FUROSEMIDE
     Indication: Fluid retention
     Dosage: 120 MILLIGRAM, QD
     Route: 048
  2. MACITENTAN [Suspect]
     Active Substance: MACITENTAN
     Indication: Pulmonary arterial hypertension
     Dosage: 10 MILLIGRAM, QD
     Route: 048

REACTIONS (4)
  - Urinary incontinence [Unknown]
  - Cardiovascular function test abnormal [Unknown]
  - Blood creatinine increased [Unknown]
  - Fluid retention [Unknown]

NARRATIVE: CASE EVENT DATE: 20210827
